FAERS Safety Report 6893505-5 (Version None)
Quarter: 2010Q3

REPORT INFORMATION
  Report Type: 
  Country: None (occurrence: None)
  Receive Date: 20100731
  Receipt Date: 20090929
  Transmission Date: 20110219
  Serious: No
  Sender: FDA-Public Use
  Company Number: US-PFIZER INC-001-0981-M0007742

PATIENT
  Sex: Male
  Weight: 73.469 kg

DRUGS (13)
  1. LIPITOR [Suspect]
     Indication: BLOOD CHOLESTEROL INCREASED
     Dosage: UNK
     Route: 048
  2. LIPITOR [Suspect]
     Dosage: 10 MG, 1X/DAY
     Route: 048
     Dates: start: 20070101
  3. ZOLOFT [Suspect]
     Indication: DEPRESSION
     Dosage: DAILY
     Route: 048
     Dates: start: 19920101
  4. ZOLOFT [Suspect]
     Indication: ATTENTION DEFICIT/HYPERACTIVITY DISORDER
     Dosage: DAILY
     Route: 048
  5. D4T [Concomitant]
     Dosage: UNK
  6. SUSTIVA [Concomitant]
     Dosage: UNK
  7. COMBIVIR [Concomitant]
     Dosage: UNK
  8. VIRACEPT [Concomitant]
     Dosage: UNK
  9. ZYRTEC [Concomitant]
     Dosage: UNK
  10. ZERIT [Concomitant]
     Dosage: UNK
  11. ZIAGEN [Concomitant]
     Dosage: UNK
  12. NIZORAL [Concomitant]
     Dosage: UNK
  13. TRILIPIX [Concomitant]
     Dosage: UNK

REACTIONS (6)
  - ANDROGENS ABNORMAL [None]
  - BLOOD TESTOSTERONE DECREASED [None]
  - HEPATIC ENZYME DECREASED [None]
  - HIGH DENSITY LIPOPROTEIN DECREASED [None]
  - LOW DENSITY LIPOPROTEIN INCREASED [None]
  - SEX HORMONE BINDING GLOBULIN [None]
